FAERS Safety Report 9910005 (Version 1)
Quarter: 2014Q1

REPORT INFORMATION
  Report Type: Spontaneous
  Country: US (occurrence: None)
  Receive Date: 20140212
  Receipt Date: 20140212
  Transmission Date: 20141002
  Serious: Yes (Death)
  Sender: FDA-Public Use
  Company Number: 2014-US-001230

PATIENT
  Age: 27 Year
  Sex: Male

DRUGS (4)
  1. CLOZAPINE USP, ODT (CLOZAPINE, USP) TABLET [Suspect]
     Indication: SCHIZOAFFECTIVE DISORDER
     Route: 048
     Dates: start: 20131114
  2. HALDOL(HALOPDRIDOL LACTATE) [Concomitant]
  3. DEPAKOTE(VALPROATE SEMISODIUM) [Concomitant]
  4. TRAZODONE HCL(TRAZODONE HYDROCHLORIDE) [Concomitant]

REACTIONS (1)
  - Cardiac arrest [None]
